FAERS Safety Report 5891979-X (Version None)
Quarter: 2008Q3

REPORT INFORMATION
  Report Type: 
  Country: None (occurrence: None)
  Receive Date: 20080922
  Receipt Date: 20080917
  Transmission Date: 20090109
  Serious: Yes (Hospitalization, Disabling)
  Sender: FDA-Public Use
  Company Number: DE-PFIZER INC-2008078611

PATIENT
  Age: 11 Year
  Sex: Female
  Weight: 43 kg

DRUGS (4)
  1. GENOTROPIN [Suspect]
     Indication: TURNER'S SYNDROME
     Dosage: TEXT:15.4MG/WEEK
     Route: 058
     Dates: start: 20010516
  2. LEVOTHYROXINE SODIUM [Concomitant]
     Dosage: DAILY DOSE:25MCG
     Dates: start: 20020501, end: 20050629
  3. LEVOTHYROXINE SODIUM [Concomitant]
     Dosage: DAILY DOSE:50MCG
     Dates: start: 20050630, end: 20070208
  4. LEVOTHYROXINE SODIUM [Concomitant]
     Dosage: DAILY DOSE:75MCG
     Dates: start: 20070209

REACTIONS (1)
  - CHOLESTEATOMA [None]
